FAERS Safety Report 6661614-1 (Version None)
Quarter: 2010Q1

REPORT INFORMATION
  Report Type: 
  Country: None (occurrence: None)
  Receive Date: 20100331
  Receipt Date: 20090224
  Transmission Date: 20100710
  Serious: Yes (Other)
  Sender: FDA-Public Use
  Company Number: US-BRISTOL-MYERS SQUIBB COMPANY-14513881

PATIENT
  Age: 71 Year
  Sex: Male

DRUGS (6)
  1. ERBITUX [Suspect]
     Indication: HEAD AND NECK CANCER
     Dosage: TEST DOSE OF CETUXIMAB (900MG/ INTRAVENOUS BOLUS) AND AFTER 10 CC-INFUSION STOPPED DUE TO IRR.
     Route: 040
     Dates: start: 20090130
  2. ASPIRIN [Concomitant]
  3. TRAVOPROST [Concomitant]
     Dosage: EYE DROPS
  4. NOVOLIN [Concomitant]
     Dosage: 1DF=25UNITS INAM + 20UNITS IN PM
  5. ENALAPRIL MALEATE [Concomitant]
     Dosage: TABS
  6. BRIMONIDINE [Concomitant]
     Dosage: EYE DROPS

REACTIONS (1)
  - INFUSION RELATED REACTION [None]
